FAERS Safety Report 4266092-8 (Version None)
Quarter: 2004Q1

REPORT INFORMATION
  Report Type: 
  Country: None (occurrence: None)
  Receive Date: 20040106
  Receipt Date: 20031226
  Transmission Date: 20041129
  Serious: Yes (Life-Threatening)
  Sender: FDA-Public Use
  Company Number: 2004192396FR

PATIENT
  Age: 1 Year
  Sex: Male
  Weight: 10 kg

DRUGS (6)
  1. SOLU-MEDROL [Suspect]
     Dosage: IV
     Route: 042
  2. PROGRAF [Suspect]
     Dosage: IV
     Route: 042
  3. IMUREL [Concomitant]
  4. NEBCINE (TOBRAMYCIN SULFATE) [Concomitant]
  5. CIFLOX [Concomitant]
  6. TARGOCID [Concomitant]

REACTIONS (12)
  - COMPLICATIONS OF TRANSPLANT SURGERY [None]
  - DRUG LEVEL INCREASED [None]
  - GRAFT COMPLICATION [None]
  - HEPATIC CIRRHOSIS [None]
  - HEPATIC FAILURE [None]
  - HEPATIC NECROSIS [None]
  - INTESTINAL PERFORATION [None]
  - LIVER TRANSPLANT [None]
  - PERITONITIS BACTERIAL [None]
  - PSEUDOMONAS INFECTION [None]
  - THROMBOCYTOPENIA [None]
  - TRANSPLANT REJECTION [None]
